FAERS Safety Report 22337475 (Version 1)
Quarter: 2023Q2

REPORT INFORMATION
  Report Type: Spontaneous
  Country: IN (occurrence: None)
  Receive Date: 20230518
  Receipt Date: 20230518
  Transmission Date: 20230722
  Serious: Yes (Hospitalization, Other)
  Sender: FDA-Public Use
  Company Number: IN-ROCHE-2862894

PATIENT
  Age: 71 Year
  Sex: Female

DRUGS (9)
  1. GAZYVA [Suspect]
     Active Substance: OBINUTUZUMAB
     Indication: Renal cancer
     Route: 042
     Dates: start: 20210625
  2. PHENIRAMINE [Concomitant]
     Active Substance: PHENIRAMINE
  3. MEDROL [Concomitant]
     Active Substance: METHYLPREDNISOLONE
  4. WARFARIN [Concomitant]
     Active Substance: WARFARIN
  5. TORSEMIDE [Concomitant]
     Active Substance: TORSEMIDE
  6. AMLODIPINE [Concomitant]
     Active Substance: AMLODIPINE BESYLATE
  7. ATORVASTATIN [Concomitant]
     Active Substance: ATORVASTATIN
  8. RITUXIMAB [Concomitant]
     Active Substance: RITUXIMAB
     Dates: start: 20180219
  9. RITUXIMAB [Concomitant]
     Active Substance: RITUXIMAB
     Dates: start: 20190628

REACTIONS (2)
  - Off label use [Unknown]
  - Anaphylactic shock [Unknown]

NARRATIVE: CASE EVENT DATE: 20230425
